FAERS Safety Report 11826794 (Version 3)
Quarter: 2016Q1

REPORT INFORMATION
  Report Type: Report from Study
  Country: TR (occurrence: TR)
  Receive Date: 20151211
  Receipt Date: 20160205
  Transmission Date: 20160525
  Serious: Yes (Death)
  Sender: FDA-Public Use
  Company Number: TR-PFIZER INC-2015181201

PATIENT
  Age: 44 Year
  Sex: Female

DRUGS (3)
  1. PALBOCICLIB [Suspect]
     Active Substance: PALBOCICLIB
     Indication: BREAST CANCER METASTATIC
     Dosage: UNK UNK, CYCLIC
     Dates: start: 201505, end: 2015
  2. AROMASIN [Concomitant]
     Active Substance: EXEMESTANE
     Dosage: UNK, AS NEEDED
  3. EUTHYROX [Concomitant]
     Active Substance: LEVOTHYROXINE SODIUM
     Dosage: UNK, AS NEEDED

REACTIONS (5)
  - Breast cancer metastatic [Fatal]
  - White blood cell count decreased [Recovering/Resolving]
  - Disease progression [Fatal]
  - Platelet count decreased [Recovering/Resolving]
  - Liver function test increased [Unknown]

NARRATIVE: CASE EVENT DATE: 2015
